FAERS Safety Report 10108872 (Version 1)
Quarter: 2014Q2

REPORT INFORMATION
  Report Type: Spontaneous
  Country: US (occurrence: None)
  Receive Date: 20140423
  Receipt Date: 20140423
  Transmission Date: 20141212
  Serious: Yes (Death)
  Sender: FDA-Public Use
  Company Number: AUR-APL-2014-04773

PATIENT
  Age: 5 Year
  Sex: 0

DRUGS (4)
  1. CEFTRIAXONE [Suspect]
     Indication: ROCKY MOUNTAIN SPOTTED FEVER
  2. DOXYCYCLINE HYCLATE [Suspect]
     Indication: ROCKY MOUNTAIN SPOTTED FEVER
  3. VANCOMYCIN HCL [Suspect]
     Indication: ROCKY MOUNTAIN SPOTTED FEVER
  4. CEPHALEXIN [Concomitant]

REACTIONS (6)
  - Multi-organ failure [None]
  - Lethargy [None]
  - Sepsis [None]
  - Cardiac arrest [None]
  - Brain death [None]
  - Rocky mountain spotted fever [None]
